FAERS Safety Report 20584118 (Version 1)
Quarter: 2022Q1

REPORT INFORMATION
  Report Type: Report from Study
  Country: NL (occurrence: NL)
  Receive Date: 20220311
  Receipt Date: 20220311
  Transmission Date: 20220423
  Serious: Yes (Other)
  Sender: FDA-Public Use
  Company Number: NL-MYLANLABS-2022M1018781

PATIENT

DRUGS (6)
  1. FLUOROURACIL [Suspect]
     Active Substance: FLUOROURACIL
     Indication: Metastases to peritoneum
     Dosage: 400 MILLIGRAM/SQ. METER, CYCLE, BODY SURFACE AREA BOLUS ON DAY 1
     Route: 040
  2. FLUOROURACIL [Suspect]
     Active Substance: FLUOROURACIL
     Indication: Colorectal cancer
     Dosage: 2400 MILLIGRAM/SQ. METER, CYCLE, BODY SURFACE AREA CONTINUOUS INFUSION ON DAYS 1-2
     Route: 042
  3. OXALIPLATIN [Suspect]
     Active Substance: OXALIPLATIN
     Indication: Metastases to peritoneum
     Dosage: 85 MILLIGRAM/SQ. METER, CYCLE, BODY SURFACE AREA ON DAY 1
     Route: 042
  4. OXALIPLATIN [Suspect]
     Active Substance: OXALIPLATIN
     Indication: Colorectal cancer
  5. LEUCOVORIN [Suspect]
     Active Substance: LEUCOVORIN
     Indication: Metastases to peritoneum
     Dosage: 400 MILLIGRAM/SQ. METER, CYCLE, BODY SURFACE AREA ON DAY 1
     Route: 042
  6. LEUCOVORIN [Suspect]
     Active Substance: LEUCOVORIN
     Indication: Colorectal cancer

REACTIONS (3)
  - Gastrointestinal toxicity [Unknown]
  - Skin toxicity [Unknown]
  - Haematotoxicity [Unknown]
